FAERS Safety Report 11418974 (Version 1)
Quarter: 2015Q3

REPORT INFORMATION
  Report Type: Spontaneous
  Country: US (occurrence: US)
  Receive Date: 20150826
  Receipt Date: 20150826
  Transmission Date: 20151125
  Serious: Yes (Other)
  Sender: FDA-Public Use
  Company Number: US-ROCHE-ITM201505IM016851

PATIENT
  Sex: Male

DRUGS (3)
  1. ESBRIET [Suspect]
     Active Substance: PIRFENIDONE
     Dosage: 2403 MG
     Route: 048
  2. ESBRIET [Suspect]
     Active Substance: PIRFENIDONE
     Indication: IDIOPATHIC PULMONARY FIBROSIS
     Dosage: 1 CAPSULE IN AM, 2 CAPSULES IN PM
     Route: 048
     Dates: start: 20150415
  3. WARFARIN [Concomitant]
     Active Substance: WARFARIN

REACTIONS (5)
  - Pneumonia [Unknown]
  - Oral disorder [Unknown]
  - Dyspnoea [Unknown]
  - Sinus headache [Unknown]
  - Ageusia [Unknown]
